FAERS Safety Report 5020983-9 (Version None)
Quarter: 2006Q2

REPORT INFORMATION
  Report Type: 
  Country: None (occurrence: None)
  Receive Date: 20060608
  Receipt Date: 20060529
  Transmission Date: 20061013
  Serious: Yes (Death)
  Sender: FDA-Public Use
  Company Number: PHBS2006FR07808

PATIENT
  Age: 38 Year
  Sex: Female

DRUGS (10)
  1. PREDNISONE (NGX) [Suspect]
     Indication: SYSTEMIC LUPUS ERYTHEMATOSUS
     Route: 048
     Dates: start: 19920101
  2. PREDNISONE (NGX) [Suspect]
     Dosage: 15 MG/D
     Route: 048
  3. ANTIMALARIALS [Concomitant]
  4. METHOTREXATE (NGX) [Suspect]
     Indication: SYSTEMIC LUPUS ERYTHEMATOSUS
     Route: 065
     Dates: start: 19920101
  5. METHOTREXATE (NGX) [Suspect]
     Route: 065
     Dates: end: 19940101
  6. METHOTREXATE (NGX) [Suspect]
     Dates: start: 20020101
  7. METHOTREXATE (NGX) [Suspect]
     Dosage: 7.5 MG/WEEK
     Route: 048
  8. CYCLOPHOSPHAMIDE [Suspect]
     Indication: SYSTEMIC LUPUS ERYTHEMATOSUS
     Dates: start: 19930101
  9. CHLOROQUINE PHOSPHATE [Concomitant]
     Dosage: 1 DF, QD
     Route: 048
  10. CYCLOSPORINE [Suspect]
     Indication: SYSTEMIC LUPUS ERYTHEMATOSUS
     Dosage: UNK, UNK
     Route: 065
     Dates: start: 19940101, end: 20020101

REACTIONS (7)
  - BLOOD LACTATE DEHYDROGENASE INCREASED [None]
  - BURKITT'S LYMPHOMA [None]
  - CSF PROTEIN INCREASED [None]
  - FACIAL PALSY [None]
  - NERVE ROOT LESION [None]
  - NERVOUS SYSTEM DISORDER [None]
  - TRIGEMINAL NERVE DISORDER [None]
